FAERS Safety Report 4871407-3 (Version None)
Quarter: 2006Q1

REPORT INFORMATION
  Report Type: 
  Country: None (occurrence: None)
  Receive Date: 20060103
  Receipt Date: 20051227
  Transmission Date: 20060701
  Serious: Yes (Hospitalization)
  Sender: FDA-Public Use
  Company Number: SE-MERCK-0512SWE00029

PATIENT
  Age: 7 Year
  Sex: Female

DRUGS (3)
  1. AMINOHIPPURATE SODIUM [Suspect]
     Indication: INULIN RENAL CLEARANCE
     Route: 051
     Dates: start: 20051108, end: 20051108
  2. AMINOHIPPURATE SODIUM [Suspect]
     Route: 051
     Dates: start: 20051108, end: 20051108
  3. INULIN [Suspect]
     Route: 051
     Dates: start: 20051108, end: 20051108

REACTIONS (1)
  - ANAPHYLACTIC REACTION [None]
